FAERS Safety Report 6758972-6 (Version None)
Quarter: 2010Q2

REPORT INFORMATION
  Report Type: 
  Country: None (occurrence: None)
  Receive Date: 20100603
  Receipt Date: 20100531
  Transmission Date: 20101027
  Serious: Yes (Other)
  Sender: FDA-Public Use
  Company Number: 011382

PATIENT
  Sex: Female
  Weight: 73 kg

DRUGS (9)
  1. CERTOLIZUMAB PEGOL (CERTOLIZUMAB PEGOL) [Suspect]
     Indication: RHEUMATOID ARTHRITIS
     Dosage: 200MG 1X/2WEEKS SUBCUTANEOUS
     Route: 058
     Dates: start: 20090720, end: 20100118
  2. METHOTREXATE [Concomitant]
  3. TYLENOL [Concomitant]
  4. CELEBREX [Concomitant]
  5. TRAMADOL HCL [Concomitant]
  6. FOLIC ACID [Concomitant]
  7. VITAMIN C [Concomitant]
  8. MAGNESIUM [Concomitant]
  9. PREVACID [Concomitant]

REACTIONS (1)
  - LOBAR PNEUMONIA [None]
